FAERS Safety Report 18218378 (Version 1)
Quarter: 2020Q3

REPORT INFORMATION
  Report Type: Spontaneous
  Country: US (occurrence: US)
  Receive Date: 20200831
  Receipt Date: 20200831
  Transmission Date: 20201103
  Serious: Yes (Death, Hospitalization, Disabling)
  Sender: FDA-Public Use
  Company Number: None

PATIENT
  Age: 79 Year
  Sex: Female
  Weight: 79.38 kg

DRUGS (6)
  1. FISH OIL [Concomitant]
     Active Substance: FISH OIL
  2. XOSPATA [Suspect]
     Active Substance: GILTERITINIB
     Indication: FMS-LIKE TYROSINE KINASE 3 POSITIVE
     Route: 048
     Dates: start: 20200521, end: 20200619
  3. RYDAP [Concomitant]
  4. PRESERVISION [Concomitant]
     Active Substance: MINERALS\VITAMINS
  5. VITAMIN D3 [Concomitant]
     Active Substance: CHOLECALCIFEROL
  6. XOSPATA [Suspect]
     Active Substance: GILTERITINIB
     Indication: ACUTE MYELOID LEUKAEMIA RECURRENT
     Route: 048
     Dates: start: 20200521, end: 20200619

REACTIONS (46)
  - Pain in extremity [None]
  - Haemoglobin decreased [None]
  - Asthenia [None]
  - Pulmonary oedema [None]
  - Joint swelling [None]
  - Hypophagia [None]
  - White blood cell count decreased [None]
  - Condition aggravated [None]
  - Fatigue [None]
  - Liver abscess [None]
  - Grunting [None]
  - Dysuria [None]
  - Exercise tolerance decreased [None]
  - Pneumonia [None]
  - Speech disorder [None]
  - Cough [None]
  - Skin discolouration [None]
  - Chromaturia [None]
  - Cardiotoxicity [None]
  - Metastases to liver [None]
  - Hepatic cancer [None]
  - Arthralgia [None]
  - Dyspnoea [None]
  - Neutrophil count decreased [None]
  - Left ventricular failure [None]
  - Rash [None]
  - Respiration abnormal [None]
  - Peripheral swelling [None]
  - Myalgia [None]
  - Platelet count decreased [None]
  - Generalised oedema [None]
  - Feeling hot [None]
  - Blood pressure decreased [None]
  - Silent myocardial infarction [None]
  - Cellulitis [None]
  - Skin lesion [None]
  - Erythema [None]
  - Liver function test increased [None]
  - Sinus congestion [None]
  - Bone pain [None]
  - Cardiac disorder [None]
  - Clostridium difficile infection [None]
  - Diarrhoea [None]
  - Acute myocardial infarction [None]
  - Unresponsive to stimuli [None]
  - Blood urine present [None]

NARRATIVE: CASE EVENT DATE: 20200510
